FAERS Safety Report 4284239-4 (Version None)
Quarter: 2004Q1

REPORT INFORMATION
  Report Type: 
  Country: None (occurrence: None)
  Receive Date: 20040203
  Receipt Date: 20040129
  Transmission Date: 20041129
  Serious: Yes (Hospitalization)
  Sender: FDA-Public Use
  Company Number: US-ROCHE-357611

PATIENT
  Age: 82 Year
  Sex: Female
  Weight: 66.7 kg

DRUGS (8)
  1. CAPECITABINE [Suspect]
     Dosage: ACTUAL DOSE 3300MG DAILY, ADMINISTERED AS AN INTERMITTENT THERAPY OF 2 WEEKS TREATMENT FOLLOWED BY +
     Route: 048
     Dates: start: 20040106
  2. OXALIPLATIN [Suspect]
     Dosage: ACTUAL DOSE 224MG, ADMINISTERED ON DAY 1 OF A 3 WEEK CYCLE
     Route: 042
     Dates: start: 20040106
  3. TOPROL-XL [Concomitant]
     Dates: start: 20021015
  4. ATACAND [Concomitant]
     Dates: start: 20021015
  5. ZOCOR [Concomitant]
     Dates: start: 20000615
  6. PREMARIN [Concomitant]
     Dates: start: 19700615
  7. ALLEGRA [Concomitant]
     Dates: start: 20020615
  8. NIZATIDINE [Concomitant]
     Dates: start: 19960615

REACTIONS (2)
  - CROHN'S DISEASE [None]
  - DEHYDRATION [None]
